FAERS Safety Report 5730815-9 (Version None)
Quarter: 2008Q2

REPORT INFORMATION
  Report Type: 
  Country: None (occurrence: None)
  Receive Date: 20080430
  Receipt Date: 20071214
  Transmission Date: 20081010
  Serious: No
  Sender: FDA-Public Use
  Company Number: 2007PV033382

PATIENT
  Age: 60 Year
  Sex: Female
  Weight: 85.2762 kg

DRUGS (6)
  1. SYMLIN [Suspect]
     Indication: TYPE 1 DIABETES MELLITUS
     Dosage: 120 MCG;TID;SC, 60 MCG;TID;SC, 45 MCG;TID;SC, 30 MCG;TID;SC, 15 MCG;TID;SC
     Route: 058
     Dates: start: 20070101, end: 20070101
  2. SYMLIN [Suspect]
     Indication: TYPE 1 DIABETES MELLITUS
     Dosage: 120 MCG;TID;SC, 60 MCG;TID;SC, 45 MCG;TID;SC, 30 MCG;TID;SC, 15 MCG;TID;SC
     Route: 058
     Dates: start: 20070101, end: 20070101
  3. SYMLIN [Suspect]
     Indication: TYPE 1 DIABETES MELLITUS
     Dosage: 120 MCG;TID;SC, 60 MCG;TID;SC, 45 MCG;TID;SC, 30 MCG;TID;SC, 15 MCG;TID;SC
     Route: 058
     Dates: start: 20070101, end: 20070101
  4. SYMLIN [Suspect]
     Indication: TYPE 1 DIABETES MELLITUS
     Dosage: 120 MCG;TID;SC, 60 MCG;TID;SC, 45 MCG;TID;SC, 30 MCG;TID;SC, 15 MCG;TID;SC
     Route: 058
     Dates: start: 20070515, end: 20070101
  5. SYMLIN [Suspect]
     Indication: TYPE 1 DIABETES MELLITUS
     Dosage: 120 MCG;TID;SC, 60 MCG;TID;SC, 45 MCG;TID;SC, 30 MCG;TID;SC, 15 MCG;TID;SC
     Route: 058
     Dates: start: 20070731, end: 20070101
  6. NOVOLOG [Concomitant]

REACTIONS (5)
  - BLOOD GLUCOSE DECREASED [None]
  - DIABETES MELLITUS INADEQUATE CONTROL [None]
  - INCORRECT DOSE ADMINISTERED [None]
  - NERVOUSNESS [None]
  - TREMOR [None]
